FAERS Safety Report 4901514-8 (Version None)
Quarter: 2006Q1

REPORT INFORMATION
  Report Type: 
  Country: None (occurrence: None)
  Receive Date: 20060201
  Receipt Date: 20060201
  Transmission Date: 20060701
  Serious: Yes (Other)
  Sender: FDA-Public Use
  Company Number: None

PATIENT
  Sex: Female
  Weight: 76.2043 kg

DRUGS (6)
  1. ABILIFY [Suspect]
     Indication: HALLUCINATION
     Dosage: 10 MG PO DAILY
     Route: 048
     Dates: start: 20051007, end: 20051012
  2. CITALOPRAM HYDROBROMIDE [Concomitant]
  3. LORAZEPAM [Concomitant]
  4. GABAPENTIN [Concomitant]
  5. IBUPROFEN [Concomitant]
  6. HYDROCODONE BITARTRATE + ACETAMINOPHEN [Concomitant]

REACTIONS (1)
  - FEELING ABNORMAL [None]
